FAERS Safety Report 18588284 (Version 4)
Quarter: 2021Q1

REPORT INFORMATION
  Report Type: Report from Study
  Country: None (occurrence: US)
  Receive Date: 20201208
  Receipt Date: 20210220
  Transmission Date: 20210419
  Serious: Yes (Hospitalization, Disabling, Other)
  Sender: FDA-Public Use
  Company Number: US-ABBVIE-20K-163-3671791-00

PATIENT
  Age: 81 Year
  Sex: Female
  Weight: 64.47 kg

DRUGS (9)
  1. NORVASC [Concomitant]
     Active Substance: AMLODIPINE BESYLATE
     Indication: PRODUCT USED FOR UNKNOWN INDICATION
  2. ALPRAZOLAM. [Concomitant]
     Active Substance: ALPRAZOLAM
     Indication: SLEEP DISORDER
  3. SYNTHROID [Suspect]
     Active Substance: LEVOTHYROXINE SODIUM
     Indication: HYPOTHYROIDISM
     Route: 048
     Dates: start: 2012
  4. KEYTRUDA [Suspect]
     Active Substance: PEMBROLIZUMAB
     Indication: PRODUCT USED FOR UNKNOWN INDICATION
     Route: 065
  5. TYLENOL [Concomitant]
     Active Substance: ACETAMINOPHEN
     Indication: PAIN
     Dosage: AS NEEDED
  6. SYNTHROID [Suspect]
     Active Substance: LEVOTHYROXINE SODIUM
     Route: 048
  7. SYNTHROID [Suspect]
     Active Substance: LEVOTHYROXINE SODIUM
     Route: 048
     Dates: start: 2014, end: 2020
  8. AMLODIPINE [Concomitant]
     Active Substance: AMLODIPINE BESYLATE
     Indication: HYPERTENSION
  9. SOTALOL. [Concomitant]
     Active Substance: SOTALOL
     Indication: CARDIAC DISORDER

REACTIONS (22)
  - Nerve injury [Recovering/Resolving]
  - Post procedural infection [Unknown]
  - Fatigue [Unknown]
  - Weight decreased [Recovered/Resolved]
  - Arthralgia [Recovering/Resolving]
  - Acute respiratory failure [Unknown]
  - Gastrointestinal procedural complication [Unknown]
  - Wheelchair user [Not Recovered/Not Resolved]
  - Colon cancer [Unknown]
  - COVID-19 [Recovering/Resolving]
  - Memory impairment [Unknown]
  - Anxiety [Unknown]
  - Muscular weakness [Recovering/Resolving]
  - Pneumonia [Recovering/Resolving]
  - Constipation [Recovered/Resolved]
  - Muscle disorder [Not Recovered/Not Resolved]
  - Arthropathy [Not Recovered/Not Resolved]
  - Drug hypersensitivity [Unknown]
  - Septic shock [Unknown]
  - Intestinal resection [Unknown]
  - Mobility decreased [Unknown]
  - Headache [Recovering/Resolving]

NARRATIVE: CASE EVENT DATE: 2019
